FAERS Safety Report 7221424-3 (Version None)
Quarter: 2010Q4

REPORT INFORMATION
  Report Type: 
  Country: None (occurrence: None)
  Receive Date: 20101203
  Receipt Date: 20101222
  Transmission Date: 20110411
  Serious: Yes (Hospitalization)
  Sender: FDA-Public Use
  Company Number: 2010EU004914

PATIENT
  Age: 48 Year
  Sex: Female

DRUGS (3)
  1. TACROLIMUS [Suspect]
     Indication: HIRSUTISM
     Dosage: 1 MG, BID,
  2. TACROLIMUS [Suspect]
     Indication: LUNG TRANSPLANT
     Dosage: 1 MG, BID,
  3. ERYTHROMYCIN [Suspect]
     Indication: LOWER RESPIRATORY TRACT INFECTION

REACTIONS (6)
  - DRUG INTERACTION [None]
  - DRUG TOXICITY [None]
  - HAEMOLYTIC ANAEMIA [None]
  - HAEMOLYTIC URAEMIC SYNDROME [None]
  - OFF LABEL USE [None]
  - THROMBOCYTOPENIA [None]
